FAERS Safety Report 13766882 (Version 1)
Quarter: 2017Q3

REPORT INFORMATION
  Report Type: Spontaneous
  Country: None (occurrence: US)
  Receive Date: 20170719
  Receipt Date: 20170719
  Transmission Date: 20171127
  Serious: No
  Sender: FDA-Public Use
  Company Number: None

PATIENT
  Age: 70 Year
  Sex: Female
  Weight: 48.1 kg

DRUGS (3)
  1. DEXAMETHASONE. [Suspect]
     Active Substance: DEXAMETHASONE
     Dates: end: 20170713
  2. VELCADE [Suspect]
     Active Substance: BORTEZOMIB
     Dates: end: 20170705
  3. LENALIDOMIDE (CC-5013) [Suspect]
     Active Substance: LENALIDOMIDE
     Dates: end: 20170710

REACTIONS (2)
  - Neutrophil count decreased [None]
  - Therapy cessation [None]

NARRATIVE: CASE EVENT DATE: 20170714
